FAERS Safety Report 8046820-6 (Version None)
Quarter: 2012Q1

REPORT INFORMATION
  Report Type: 
  Country: None (occurrence: None)
  Receive Date: 20120116
  Receipt Date: 20120110
  Transmission Date: 20120608
  Serious: Yes (Hospitalization)
  Sender: FDA-Public Use
  Company Number: US-BIOGENIDEC-2012BI001356

PATIENT
  Age: 58 Year
  Sex: Female

DRUGS (2)
  1. TYSABRI [Suspect]
     Indication: MULTIPLE SCLEROSIS
     Route: 042
     Dates: start: 20061115, end: 20080722
  2. TYSABRI [Suspect]
     Route: 042
     Dates: start: 20090519, end: 20110329

REACTIONS (3)
  - INFUSION RELATED REACTION [None]
  - GINGIVAL ABSCESS [None]
  - HYPERSENSITIVITY [None]
